FAERS Safety Report 5262576-4 (Version None)
Quarter: 2007Q1

REPORT INFORMATION
  Report Type: 
  Country: None (occurrence: None)
  Receive Date: 20070312
  Receipt Date: 20070226
  Transmission Date: 20070707
  Serious: Yes (Other)
  Sender: FDA-Public Use
  Company Number: 2006GB01483

PATIENT
  Age: 89 Year
  Sex: Male
  Weight: 80 kg

DRUGS (5)
  1. MEROPENEM [Suspect]
     Indication: SEPSIS
     Route: 042
     Dates: start: 20060706
  2. OMEPRAZOLE [Concomitant]
     Route: 048
  3. ACETAMINOPHEN [Concomitant]
     Route: 048
  4. SALBUTAMOL [Concomitant]
     Route: 055
  5. THIAMINE [Concomitant]
     Route: 048

REACTIONS (2)
  - MOUTH ULCERATION [None]
  - RENAL FAILURE [None]
